FAERS Safety Report 10442751 (Version 1)
Quarter: 2014Q3

REPORT INFORMATION
  Report Type: Spontaneous
  Country: US (occurrence: US)
  Receive Date: 20140909
  Receipt Date: 20140909
  Transmission Date: 20150326
  Serious: Yes (Death)
  Sender: FDA-Public Use
  Company Number: CHPA2014US011709

PATIENT
  Sex: Female

DRUGS (1)
  1. VOLTAREN [Suspect]
     Active Substance: DICLOFENAC SODIUM
     Route: 061

REACTIONS (3)
  - Balance disorder [Fatal]
  - Wrong technique in drug usage process [Unknown]
  - Brain neoplasm [Fatal]

NARRATIVE: CASE EVENT DATE: 2010
